FAERS Safety Report 10035593 (Version 2)
Quarter: 2014Q1

REPORT INFORMATION
  Report Type: Spontaneous
  Country: ES (occurrence: ES)
  Receive Date: 20140325
  Receipt Date: 20140328
  Transmission Date: 20141002
  Serious: Yes (Hospitalization, Other)
  Sender: FDA-Public Use
  Company Number: ES-BAYER-2014-045323

PATIENT
  Age: 53 Year
  Sex: Female

DRUGS (1)
  1. BETAFERON [Suspect]
     Dosage: UNK
     Dates: start: 2009

REACTIONS (8)
  - Cerebral haematoma [Recovered/Resolved]
  - Subarachnoid haemorrhage [Recovered/Resolved]
  - Partial seizures with secondary generalisation [Recovered/Resolved]
  - Headache [Recovered/Resolved]
  - Cytotoxic oedema [Recovered/Resolved]
  - Hepatic enzyme increased [None]
  - Amylase increased [None]
  - Brain midline shift [Recovered/Resolved]
